FAERS Safety Report 21216103 (Version 1)
Quarter: 2022Q3

REPORT INFORMATION
  Report Type: Spontaneous
  Country: US (occurrence: None)
  Receive Date: 20220815
  Receipt Date: 20220815
  Transmission Date: 20221027
  Serious: Yes (Death)
  Sender: FDA-Public Use
  Company Number: None

PATIENT
  Age: 77 Year
  Sex: Male
  Weight: 86.9 kg

DRUGS (1)
  1. TECARTUS [Suspect]
     Active Substance: BREXUCABTAGENE AUTOLEUCEL
     Indication: Mantle cell lymphoma
     Dates: start: 20220517

REACTIONS (13)
  - Cytokine release syndrome [None]
  - Immune effector cell-associated neurotoxicity syndrome [None]
  - C-reactive protein increased [None]
  - Serum ferritin increased [None]
  - Confusional state [None]
  - Hyponatraemia [None]
  - Clonus [None]
  - Unresponsive to stimuli [None]
  - Hypotension [None]
  - General physical health deterioration [None]
  - Neurotoxicity [None]
  - Seizure [None]
  - Somnolence [None]

NARRATIVE: CASE EVENT DATE: 20220524
